FAERS Safety Report 19094959 (Version 1)
Quarter: 2021Q2

REPORT INFORMATION
  Report Type: Report from Study
  Country: MX (occurrence: MX)
  Receive Date: 20210405
  Receipt Date: 20210405
  Transmission Date: 20210717
  Serious: Yes (Other)
  Sender: FDA-Public Use
  Company Number: NVSC2020MX337677

PATIENT
  Sex: Female
  Weight: 60 kg

DRUGS (6)
  1. CO?DIOVAN [Suspect]
     Active Substance: HYDROCHLOROTHIAZIDE\VALSARTAN
     Indication: HYPERTENSION
     Dosage: 2 DF, QD
     Route: 065
     Dates: start: 20201206
  2. SPIRIVA [Concomitant]
     Active Substance: TIOTROPIUM BROMIDE MONOHYDRATE
     Indication: PULMONARY FIBROSIS
     Dosage: 1 DF, QD (START DATE: 1 AND A HALF AGO)
     Route: 055
  3. CO?DIOVAN [Suspect]
     Active Substance: HYDROCHLOROTHIAZIDE\VALSARTAN
     Dosage: 1 DF, QD (IN THE MORNING)
     Route: 048
  4. EUTIROX [Concomitant]
     Active Substance: LEVOTHYROXINE SODIUM
     Indication: HYPOTHYROIDISM
     Dosage: 1 DF, QD (START DATE: 2 YEARS AGO)
     Route: 048
  5. PEMIX [Concomitant]
     Indication: HIATUS HERNIA
     Dosage: 1 DF, QD (AT MID DAY/START DATE: 1 AND A HALF AGO)
     Route: 048
  6. CO?DIOVAN [Suspect]
     Active Substance: HYDROCHLOROTHIAZIDE\VALSARTAN
     Dosage: 1 DF, BID (START DATE: 2 MONTHS AND A HALF/STOP DATE: LASTED 1 WEEK) (1 IN THE MORNING AND 1 AT NIGH
     Route: 048

REACTIONS (4)
  - Off label use [Unknown]
  - Drug ineffective [Not Recovered/Not Resolved]
  - Product use in unapproved indication [Unknown]
  - Hypertension [Not Recovered/Not Resolved]
